FAERS Safety Report 19083925 (Version 1)
Quarter: 2021Q2

REPORT INFORMATION
  Report Type: Spontaneous
  Country: LV (occurrence: LV)
  Receive Date: 20210401
  Receipt Date: 20210401
  Transmission Date: 20210717
  Serious: Yes (Other)
  Sender: FDA-Public Use
  Company Number: LV-TEVA-2021-LV-1896220

PATIENT
  Age: 41 Year
  Sex: Male

DRUGS (2)
  1. BISOPROLOL?RATIOPHARM 5 MG TABLETES [Suspect]
     Active Substance: BISOPROLOL
     Indication: ESSENTIAL HYPERTENSION
     Dosage: 5MILLLIGRAM
     Route: 048
     Dates: start: 20200514, end: 20210208
  2. PERINEVA 4 MG TABLETES [Suspect]
     Active Substance: PERINDOPRIL ERBUMINE
     Indication: ESSENTIAL HYPERTENSION
     Dosage: 4MILLIGRAM
     Route: 048
     Dates: start: 20200514, end: 20210208

REACTIONS (3)
  - Confusional state [Unknown]
  - Chest pain [Unknown]
  - Heart rate decreased [Unknown]

NARRATIVE: CASE EVENT DATE: 20201113
